FAERS Safety Report 9788129 (Version 1)
Quarter: 2013Q4

REPORT INFORMATION
  Report Type: Spontaneous
  Country: US (occurrence: None)
  Receive Date: 20131227
  Receipt Date: 20131227
  Transmission Date: 20140711
  Serious: Yes (Hospitalization)
  Sender: FDA-Public Use
  Company Number: None

PATIENT
  Age: 86 Year
  Sex: Female
  Weight: 116.2 kg

DRUGS (7)
  1. LANTUS [Suspect]
     Indication: DIABETES MELLITUS
     Dosage: 50 UNITS
     Route: 058
  2. NOVOLOG [Suspect]
     Indication: DIABETES MELLITUS
     Dosage: CHRONIC US SS IV
     Route: 042
  3. COLACE [Concomitant]
  4. LASIX [Concomitant]
  5. BIDIL [Concomitant]
  6. THORAZINE [Concomitant]
  7. K-LOR [Concomitant]

REACTIONS (8)
  - Atrioventricular block complete [None]
  - Hypoglycaemia [None]
  - Blood glucose increased [None]
  - Cardiac disorder [None]
  - Mental status changes [None]
  - Respiratory disorder [None]
  - Hypernatraemia [None]
  - Hypophagia [None]
